FAERS Safety Report 19042640 (Version 1)
Quarter: 2021Q1

REPORT INFORMATION
  Report Type: Spontaneous
  Country: CN (occurrence: CN)
  Receive Date: 20210323
  Receipt Date: 20210323
  Transmission Date: 20210420
  Serious: Yes (Life-Threatening, Hospitalization)
  Sender: FDA-Public Use
  Company Number: CN-NOVOPROD-795344

PATIENT
  Age: 58 Year
  Sex: Male
  Weight: 86 kg

DRUGS (1)
  1. NOVOMIX 30 [Suspect]
     Active Substance: INSULIN ASPART
     Indication: BLOOD GLUCOSE ABNORMAL
     Dosage: 10 IU, TID
     Route: 058
     Dates: start: 20210309, end: 20210309

REACTIONS (6)
  - Nausea [Recovering/Resolving]
  - Dizziness [Recovering/Resolving]
  - Drug hypersensitivity [Recovering/Resolving]
  - Papule [Recovering/Resolving]
  - Dyspnoea [Recovering/Resolving]
  - Chest discomfort [Recovering/Resolving]

NARRATIVE: CASE EVENT DATE: 20210309
